FAERS Safety Report 8952698 (Version 2)
Quarter: 2012Q4

REPORT INFORMATION
  Report Type: 
  Country: JP (occurrence: JP)
  Receive Date: 20121205
  Receipt Date: 20121219
  Transmission Date: 20130627
  Serious: No
  Sender: FDA-Public Use
  Company Number: JP-ASTRAZENECA-2012SE89021

PATIENT
  Age: 61 Year
  Sex: Female

DRUGS (1)
  1. ZOMIG [Suspect]
     Indication: MIGRAINE
     Dosage: As required
     Route: 048
     Dates: start: 20070607

REACTIONS (4)
  - Amnesia [Recovered/Resolved]
  - Dehydration [Unknown]
  - Headache [Unknown]
  - Vomiting [Unknown]
